FAERS Safety Report 4411374-X (Version None)
Quarter: 2004Q3

REPORT INFORMATION
  Report Type: 
  Country: None (occurrence: None)
  Receive Date: 20040727
  Receipt Date: 20040713
  Transmission Date: 20050211
  Serious: Yes (Hospitalization)
  Sender: FDA-Public Use
  Company Number: 2004AP03527

PATIENT
  Age: 65 Year
  Sex: Female

DRUGS (4)
  1. IRESSA [Suspect]
     Indication: LUNG ADENOCARCINOMA
     Dosage: 250 MG DAILY PO
     Route: 048
     Dates: start: 20040507, end: 20040618
  2. GEMCITABINE [Concomitant]
  3. NAVELBINE [Concomitant]
  4. RADIATION THERAPY [Concomitant]

REACTIONS (4)
  - ACNE [None]
  - LIVER DISORDER [None]
  - RASH [None]
  - SKIN CHAPPED [None]
